FAERS Safety Report 9854702 (Version 2)
Quarter: 2014Q1

REPORT INFORMATION
  Report Type: Spontaneous
  Country: US (occurrence: US)
  Receive Date: 20140130
  Receipt Date: 20140130
  Transmission Date: 20141002
  Serious: Yes (Other)
  Sender: FDA-Public Use
  Company Number: US-AMGEN-USASP2014003878

PATIENT
  Age: 59 Year
  Sex: Male

DRUGS (3)
  1. ENBREL [Suspect]
     Indication: RHEUMATOID ARTHRITIS
     Dosage: 50 MG, QWK
     Route: 065
     Dates: start: 20100907, end: 20140107
  2. CIPRO /00697201/ [Suspect]
     Indication: INFECTION
     Dosage: UNK
     Route: 065
  3. BACTRIM [Suspect]
     Indication: INFECTION
     Dosage: UNK
     Route: 065

REACTIONS (7)
  - Tendon rupture [Recovered/Resolved]
  - Infective tenosynovitis [Not Recovered/Not Resolved]
  - Mobility decreased [Recovered/Resolved]
  - Pruritus allergic [Recovered/Resolved]
  - Drug eruption [Recovered/Resolved]
  - Rheumatoid arthritis [Unknown]
  - Gait disturbance [Recovered/Resolved]
